FAERS Safety Report 4564966-1 (Version None)
Quarter: 2005Q1

REPORT INFORMATION
  Report Type: 
  Country: None (occurrence: None)
  Receive Date: 20050131
  Receipt Date: 20050125
  Transmission Date: 20050727
  Serious: Yes (Hospitalization)
  Sender: FDA-Public Use
  Company Number: US-JNJFOC-20050106164

PATIENT
  Age: 86 Year
  Sex: Male

DRUGS (7)
  1. DURAGESIC [Suspect]
     Route: 062
  2. PREDNISONE [Concomitant]
  3. SYNTHROID [Concomitant]
  4. FLOMAX [Concomitant]
  5. PRILOSEC [Concomitant]
  6. CELEXA [Concomitant]
  7. FOLIC ACID [Concomitant]

REACTIONS (1)
  - PNEUMONIA [None]
